FAERS Safety Report 6491650-X (Version None)
Quarter: 2009Q4

REPORT INFORMATION
  Report Type: 
  Country: None (occurrence: None)
  Receive Date: 20091207
  Receipt Date: 20091127
  Transmission Date: 20100525
  Serious: Yes (Hospitalization)
  Sender: FDA-Public Use
  Company Number: 2008SP011199

PATIENT
  Age: 78 Year
  Sex: Male
  Weight: 79.2 kg

DRUGS (3)
  1. PEG-INTRON [Suspect]
     Indication: METASTATIC MALIGNANT MELANOMA
     Dosage: 238 MCG; ONCE; SC 238 MCG; ONCE; SC
     Route: 058
     Dates: start: 20080527
  2. PEG-INTRON [Suspect]
     Indication: METASTATIC MALIGNANT MELANOMA
     Dosage: 238 MCG; ONCE; SC 238 MCG; ONCE; SC
     Route: 058
     Dates: start: 20080602
  3. SORAFENIB (SORAFENIB) [Suspect]
     Indication: METASTATIC MALIGNANT MELANOMA
     Dosage: 400 MG; QD; PO
     Route: 048
     Dates: start: 20080527, end: 20080607

REACTIONS (7)
  - BLOOD CALCIUM DECREASED [None]
  - BLOOD LACTATE DEHYDROGENASE INCREASED [None]
  - BLOOD URINE PRESENT [None]
  - HAEMOGLOBIN DECREASED [None]
  - INFECTION [None]
  - MYALGIA [None]
  - PELVIC VENOUS THROMBOSIS [None]
